FAERS Safety Report 17456248 (Version 1)
Quarter: 2020Q1

REPORT INFORMATION
  Report Type: Spontaneous
  Country: IT (occurrence: IT)
  Receive Date: 20200225
  Receipt Date: 20200225
  Transmission Date: 20200409
  Serious: Yes (Other)
  Sender: FDA-Public Use
  Company Number: IT-ASTRAZENECA-2020SE23625

PATIENT
  Age: 86 Year
  Sex: Female

DRUGS (5)
  1. TALOFEN [Concomitant]
     Active Substance: PROMAZINE HYDROCHLORIDE
     Dosage: 4 G/100 ML
     Route: 048
  2. SEROQUEL [Suspect]
     Active Substance: QUETIAPINE FUMARATE
     Indication: PSYCHOTIC DISORDER
     Route: 048
     Dates: start: 20190701, end: 20190725
  3. LASIX [Concomitant]
     Active Substance: FUROSEMIDE
  4. MADOPAR [Concomitant]
     Active Substance: BENSERAZIDE HYDROCHLORIDE\LEVODOPA
     Dosage: 100 MG + 25 MG
  5. CARDIOASPIRIN [Concomitant]
     Active Substance: ASPIRIN

REACTIONS (5)
  - Disorientation [Recovering/Resolving]
  - Agitation [Recovering/Resolving]
  - Hypokalaemia [Recovering/Resolving]
  - Confabulation [Recovering/Resolving]
  - Aggression [Recovering/Resolving]

NARRATIVE: CASE EVENT DATE: 20190725
